FAERS Safety Report 4527991-2 (Version None)
Quarter: 2004Q4

REPORT INFORMATION
  Report Type: 
  Country: None (occurrence: None)
  Receive Date: 20041123
  Receipt Date: 20040312
  Transmission Date: 20050328
  Serious: Yes (Other)
  Sender: FDA-Public Use
  Company Number: 2004010233

PATIENT
  Sex: Female
  Weight: 77.1115 kg

DRUGS (11)
  1. LIPITOR [Suspect]
     Indication: BLOOD CHOLESTEROL
     Dosage: ORAL
     Route: 048
     Dates: end: 20030601
  2. LOVASTATIN [Suspect]
     Indication: BLOOD CHOLESTEROL
     Dates: start: 20030101
  3. DILTIAZEM HYDROCHLORIDE [Concomitant]
  4. ATENOLOL [Concomitant]
  5. ESCITALOPRAM (ESCITALOPRAM) [Concomitant]
  6. VALSARTAN (VALSARTAN) [Concomitant]
  7. ARTHROTEC [Concomitant]
  8. OXYBUTYNIN CHLORIDE [Concomitant]
  9. TRAZODONE HCL [Concomitant]
  10. GLIPIZIDE [Concomitant]
  11. METFORMIN HCL [Concomitant]

REACTIONS (3)
  - CHEST PAIN [None]
  - CORONARY ARTERY STENOSIS [None]
  - DRUG INTOLERANCE [None]
